FAERS Safety Report 7125076 (Version 8)
Quarter: 2012Q4

REPORT INFORMATION
  Report Type: 
  Country: CA (occurrence: CA)
  Receive Date: 20090922
  Receipt Date: 20121109
  Transmission Date: 20130627
  Serious: Yes (Hospitalization, Other)
  Sender: FDA-Public Use
  Company Number: PHHY2009CA34934

PATIENT
  Sex: Male

DRUGS (4)
  1. SANDOSTATIN LAR [Suspect]
     Indication: CARCINOID TUMOUR
     Dosage: 40 mg, TIW
     Route: 030
     Dates: start: 20050704
  2. SANDOSTATIN LAR [Suspect]
     Dosage: 50 mg, TIW
     Route: 030
  3. PARENTERAL NUTRITION [Concomitant]
  4. NOVARSC [Concomitant]
     Dosage: 5 mg, QD

REACTIONS (26)
  - Postoperative wound infection [Not Recovered/Not Resolved]
  - General physical health deterioration [Unknown]
  - Weight decreased [Unknown]
  - Cachexia [Unknown]
  - Gastrointestinal disorder [Unknown]
  - Gastric mucosal lesion [Unknown]
  - Mobility decreased [Unknown]
  - Dehydration [Not Recovered/Not Resolved]
  - Intestinal obstruction [Unknown]
  - Frequent bowel movements [Unknown]
  - Vomiting [Not Recovered/Not Resolved]
  - Asthenia [Not Recovered/Not Resolved]
  - Jaundice [Unknown]
  - Blood bilirubin increased [Unknown]
  - Gastrooesophageal reflux disease [Unknown]
  - Pain [Unknown]
  - Speech disorder [Unknown]
  - Back pain [Recovered/Resolved]
  - Drug administration error [Unknown]
  - Haemorrhoids [Unknown]
  - Restlessness [Unknown]
  - Flushing [Unknown]
  - Electrocardiogram abnormal [Unknown]
  - Injection site pain [Unknown]
  - Diarrhoea [Unknown]
  - Fatigue [Unknown]
